FAERS Safety Report 9696962 (Version 2)
Quarter: 2013Q4

REPORT INFORMATION
  Report Type: Spontaneous
  Country: US (occurrence: US)
  Receive Date: 20131119
  Receipt Date: 20131223
  Transmission Date: 20140711
  Serious: Yes (Hospitalization, Other)
  Sender: FDA-Public Use
  Company Number: US-GILEAD-2013-0087677

PATIENT
  Age: 64 Year
  Sex: Male

DRUGS (4)
  1. VIREAD [Suspect]
     Indication: HEPATITIS B
     Dosage: 300 MG, UNK
     Route: 048
  2. ALBUTEROL HFA [Concomitant]
     Dosage: UNK MG, UNK
     Route: 055
  3. BENAZEPRIL [Concomitant]
     Dosage: UNK
     Route: 048
  4. QVAR [Concomitant]
     Dosage: UNK
     Route: 055

REACTIONS (1)
  - Small cell lung cancer [Unknown]
